FAERS Safety Report 6407596-9 (Version None)
Quarter: 2009Q4

REPORT INFORMATION
  Report Type: 
  Country: None (occurrence: None)
  Receive Date: 20091020
  Receipt Date: 20091008
  Transmission Date: 20100525
  Serious: Yes (Other)
  Sender: FDA-Public Use
  Company Number: US-WYE-H11607609

PATIENT
  Sex: Male

DRUGS (1)
  1. PRISTIQ [Suspect]
     Dosage: UNKNOWN
     Route: 048
     Dates: end: 20080601

REACTIONS (4)
  - DRUG WITHDRAWAL SYNDROME [None]
  - HOMICIDE [None]
  - HOSTILITY [None]
  - INTENTIONAL DRUG MISUSE [None]
